FAERS Safety Report 7676589-6 (Version None)
Quarter: 2011Q3

REPORT INFORMATION
  Report Type: 
  Country: None (occurrence: None)
  Receive Date: 20110811
  Receipt Date: 20110804
  Transmission Date: 20111222
  Serious: Yes (Hospitalization, Other)
  Sender: FDA-Public Use
  Company Number: PL-PFIZER INC-2011179410

PATIENT
  Age: 73 Year
  Sex: Female

DRUGS (5)
  1. VINCRISTINE [Suspect]
     Indication: DIFFUSE LARGE B-CELL LYMPHOMA
     Dosage: 2 MG, 1X/DAY
     Route: 042
     Dates: start: 20100501, end: 20100801
  2. DOXORUBICIN HCL [Suspect]
     Indication: DIFFUSE LARGE B-CELL LYMPHOMA
     Dosage: 70 MG, 1X/DAY
     Route: 042
     Dates: start: 20100501, end: 20100801
  3. MABTHERA [Suspect]
     Indication: DIFFUSE LARGE B-CELL LYMPHOMA
     Dosage: 550 MG, 1X/DAY
     Route: 042
     Dates: start: 20100501, end: 20100801
  4. CYCLOPHOSPHAMIDE [Suspect]
     Indication: DIFFUSE LARGE B-CELL LYMPHOMA
     Dosage: 1200 MG, 2X/DAY
     Route: 042
     Dates: start: 20100501, end: 20100801
  5. PREDNISONE [Suspect]
     Indication: DIFFUSE LARGE B-CELL LYMPHOMA
     Dosage: 5 MG, 4-3-3 (TABLETS) DURING 5 DAYS
     Dates: start: 20100501, end: 20100801

REACTIONS (4)
  - HAEMATOTOXICITY [None]
  - HEPATIC FAILURE [None]
  - HEPATITIS B [None]
  - FEBRILE NEUTROPENIA [None]
